FAERS Safety Report 19681566 (Version 2)
Quarter: 2021Q3

REPORT INFORMATION
  Report Type: Report from Study
  Country: EG (occurrence: EG)
  Receive Date: 20210810
  Receipt Date: 20210826
  Transmission Date: 20211014
  Serious: Yes (Other)
  Sender: FDA-Public Use
  Company Number: NVSC2021EG178002

PATIENT
  Age: 32 Year
  Sex: Male

DRUGS (7)
  1. ANUVA [Concomitant]
     Indication: CANCER PAIN
     Dosage: UNK (1 OR 2 TIME PER DAY)
     Route: 065
  2. KETOLAC [Concomitant]
     Active Substance: KETOROLAC TROMETHAMINE
     Dosage: 1 DF, EVERY 10 MINS
     Route: 065
  3. CATAFLAM [Concomitant]
     Active Substance: DICLOFENAC POTASSIUM
     Indication: CANCER PAIN
     Dosage: UNK (1 OR 2 TIME PER DAY)
     Route: 065
  4. AFINITOR [Suspect]
     Active Substance: EVEROLIMUS
     Indication: METASTATIC CARCINOMA OF THE BLADDER
     Dosage: 5 MG, QD
     Route: 048
     Dates: start: 20210525
  5. ANUVA [Concomitant]
     Dosage: 1 DF (1 TAB EVERY 10 MIN)
     Route: 065
  6. CATAFLAM [Concomitant]
     Active Substance: DICLOFENAC POTASSIUM
     Dosage: 1 DF (1 TAB EVERY 10 MINTES)
     Route: 065
  7. KETOLAC [Concomitant]
     Active Substance: KETOROLAC TROMETHAMINE
     Indication: CANCER PAIN
     Dosage: 1 DF (1 OR 2 TIME PER DAY)
     Route: 065

REACTIONS (2)
  - Product dose omission issue [Not Recovered/Not Resolved]
  - Fluid retention [Not Recovered/Not Resolved]

NARRATIVE: CASE EVENT DATE: 20210715
